FAERS Safety Report 6702360-5 (Version None)
Quarter: 2010Q2

REPORT INFORMATION
  Report Type: 
  Country: None (occurrence: None)
  Receive Date: 20100429
  Receipt Date: 20100415
  Transmission Date: 20101027
  Serious: Yes (Hospitalization)
  Sender: FDA-Public Use
  Company Number: US-ELI_LILLY_AND_COMPANY-US201004005479

PATIENT
  Sex: Male

DRUGS (16)
  1. FORTEO [Suspect]
     Indication: OSTEOPOROSIS
     Dosage: 20 UG, DAILY (1/D)
  2. BACTRIM DS [Concomitant]
     Dosage: 1 D/F, 2/D
  3. CALCIUM + VITAMIN D [Concomitant]
     Dosage: 600 MG, 2/D
  4. VITAMIN D3 [Concomitant]
     Dosage: 1000 MG, EACH EVENING
  5. ASPIRIN [Concomitant]
     Dosage: 81 MG, DAILY (1/D)
  6. MIRALAX [Concomitant]
     Dosage: 16 G, DAILY (1/D)
  7. MOBIC [Concomitant]
     Dosage: 7.5 MG, DAILY (1/D)
  8. LYRICA [Concomitant]
     Dosage: 75 MG, 2/D
  9. POTASSIUM [Concomitant]
     Dosage: 20 MEQ, 2/D
  10. PRILOSEC [Concomitant]
     Dosage: 20 MG, DAILY (1/D)
  11. LORAZEPAM [Concomitant]
     Dosage: 0.5 MG, EACH EVENING AS NEEDED
  12. OXYCODONE [Concomitant]
     Dosage: 12 MG, EVERY 4 HRS
  13. ACETAMINOPHEN [Concomitant]
     Dosage: 650 MG, EVERY 4 HRS AS NEEDED
  14. MILK OF MAGNESIA TAB [Concomitant]
     Dosage: 30 ML, DAILY (1/D) AS NEEDED
  15. NOVOLOG [Concomitant]
  16. DEMADEX [Concomitant]
     Dosage: 20 MG, DAILY (1/D)

REACTIONS (3)
  - CELLULITIS [None]
  - PNEUMONIA [None]
  - SEPSIS [None]
